FAERS Safety Report 8263437-9 (Version None)
Quarter: 2012Q1

REPORT INFORMATION
  Report Type: 
  Country: None (occurrence: None)
  Receive Date: 20120327
  Receipt Date: 20110509
  Transmission Date: 20120608
  Serious: Yes (Other)
  Sender: FDA-Public Use
  Company Number: PHHY2011US35219

PATIENT
  Age: 60 Year
  Sex: Female

DRUGS (1)
  1. GLEEVEC [Suspect]
     Indication: CHRONIC MYELOID LEUKAEMIA
     Dosage: 400 MG, PER DAY, ORAL
     Route: 048
     Dates: start: 20100101

REACTIONS (2)
  - PALPITATIONS [None]
  - DRUG INTOLERANCE [None]
